FAERS Safety Report 5792552-4 (Version None)
Quarter: 2008Q2

REPORT INFORMATION
  Report Type: 
  Country: None (occurrence: None)
  Receive Date: 20080624
  Receipt Date: 20080609
  Transmission Date: 20081010
  Serious: Yes (Other)
  Sender: FDA-Public Use
  Company Number: 8033637

PATIENT
  Age: 77 Year
  Sex: Female

DRUGS (1)
  1. VITAMIN D2 [Suspect]
     Dosage: 50000 IU/D

REACTIONS (2)
  - BLOOD PARATHYROID HORMONE INCREASED [None]
  - HYPERCALCAEMIA [None]
